FAERS Safety Report 20862438 (Version 1)
Quarter: 2022Q2

REPORT INFORMATION
  Report Type: Spontaneous
  Country: US (occurrence: None)
  Receive Date: 20220523
  Receipt Date: 20220523
  Transmission Date: 20220721
  Serious: No
  Sender: FDA-Public Use
  Company Number: None

PATIENT
  Age: 81 Year
  Sex: Male
  Weight: 75 kg

DRUGS (1)
  1. SEMAGLUTIDE [Suspect]
     Active Substance: SEMAGLUTIDE
     Indication: Diabetes mellitus
     Dosage: 0.5 MG QWEEK SQ
     Route: 058
     Dates: start: 20220120, end: 20220404

REACTIONS (14)
  - Nausea [None]
  - Vomiting [None]
  - Dehydration [None]
  - Acidosis [None]
  - Decreased appetite [None]
  - Asthenia [None]
  - Dizziness [None]
  - Chills [None]
  - Headache [None]
  - Bradycardia [None]
  - Rhinorrhoea [None]
  - Haematemesis [None]
  - Hypophagia [None]
  - Eating disorder [None]

NARRATIVE: CASE EVENT DATE: 20220403
